FAERS Safety Report 10204381 (Version 1)
Quarter: 2014Q2

REPORT INFORMATION
  Report Type: Spontaneous
  Country: FR (occurrence: FR)
  Receive Date: 20140529
  Receipt Date: 20140529
  Transmission Date: 20141212
  Serious: Yes (Hospitalization)
  Sender: FDA-Public Use
  Company Number: FR-PFIZER INC-2014141566

PATIENT
  Age: 16 Month
  Sex: Female
  Weight: 6.78 kg

DRUGS (5)
  1. ADVIL [Suspect]
     Indication: PYREXIA
     Dosage: UNK
     Route: 048
     Dates: start: 20140119, end: 20140120
  2. BISEPTINE [Concomitant]
     Indication: HERPES ZOSTER
     Dosage: UNK
     Dates: start: 20140118
  3. SEPTIVON [Concomitant]
     Indication: HERPES ZOSTER
     Dosage: UNK
     Dates: start: 20140118
  4. POLARAMINE [Concomitant]
     Indication: HERPES ZOSTER
     Dosage: UNK
     Dates: start: 20140118
  5. DOLIPRANE [Concomitant]
     Indication: HERPES ZOSTER
     Dosage: UNK
     Dates: start: 20140118

REACTIONS (3)
  - Cellulitis [Recovering/Resolving]
  - Shock [Recovering/Resolving]
  - Staphylococcal bacteraemia [Recovering/Resolving]
